FAERS Safety Report 5689825-2 (Version None)
Quarter: 2008Q1

REPORT INFORMATION
  Report Type: 
  Country: None (occurrence: None)
  Receive Date: 20080331
  Receipt Date: 20080331
  Transmission Date: 20080703
  Serious: Yes (Death)
  Sender: FDA-Public Use
  Company Number: None

PATIENT
  Age: 17 Year
  Sex: Female
  Weight: 56.6996 kg

DRUGS (2)
  1. SINGULAIR [Suspect]
     Indication: ASTHMA
     Dosage: 10 MG  Q HS  PO
     Route: 048
     Dates: start: 19940101, end: 20050614
  2. SINGULAIR [Suspect]

REACTIONS (1)
  - COMPLETED SUICIDE [None]
